FAERS Safety Report 4691653-1 (Version None)
Quarter: 2005Q2

REPORT INFORMATION
  Report Type: 
  Country: None (occurrence: None)
  Receive Date: 20050608
  Receipt Date: 20040423
  Transmission Date: 20051028
  Serious: Yes (Other)
  Sender: FDA-Public Use
  Company Number: 361589

PATIENT
  Age: 18 Year
  Sex: Female

DRUGS (1)
  1. ACCUTANE [Suspect]
     Dosage: ORAL
     Route: 048
     Dates: start: 19930615, end: 19930615

REACTIONS (4)
  - GENITAL PRURITUS FEMALE [None]
  - HYPERKERATOSIS [None]
  - HYPERPLASIA [None]
  - VULVAL DISORDER [None]
